FAERS Safety Report 8245062-9 (Version None)
Quarter: 2012Q1

REPORT INFORMATION
  Report Type: 
  Country: None (occurrence: None)
  Receive Date: 20120329
  Receipt Date: 20120322
  Transmission Date: 20120608
  Serious: Yes (Hospitalization)
  Sender: FDA-Public Use
  Company Number: US-GLAXOSMITHKLINE-A0928464A

PATIENT
  Age: 59 Year
  Sex: Male
  Weight: 69.1 kg

DRUGS (6)
  1. PROTONIX [Concomitant]
  2. JANUVIA [Concomitant]
  3. LISINOPRIL [Concomitant]
  4. LABETALOL HCL [Concomitant]
  5. AVANDIA [Suspect]
     Indication: TYPE 2 DIABETES MELLITUS
     Dosage: 4MG PER DAY
     Route: 048
     Dates: start: 20071001
  6. VYTORIN [Concomitant]

REACTIONS (2)
  - TRANSIENT ISCHAEMIC ATTACK [None]
  - MYOCARDIAL INFARCTION [None]
